FAERS Safety Report 11038387 (Version 1)
Quarter: 2015Q2

REPORT INFORMATION
  Report Type: Spontaneous
  Country: US (occurrence: US)
  Receive Date: 20150416
  Receipt Date: 20150416
  Transmission Date: 20150821
  Serious: No
  Sender: FDA-Public Use
  Company Number: US-MALLINCKRODT-T201402857

PATIENT
  Sex: Female

DRUGS (1)
  1. METHYLIN [Suspect]
     Active Substance: METHYLPHENIDATE HYDROCHLORIDE
     Indication: NARCOLEPSY
     Dosage: 20 MG, TWO PILLS DAILY (PRESCRIBED TID)
     Route: 048
     Dates: start: 2014

REACTIONS (3)
  - Drug dose omission [Not Recovered/Not Resolved]
  - Wrong technique in drug usage process [Not Recovered/Not Resolved]
  - Drug ineffective [Unknown]
